FAERS Safety Report 16055262 (Version 4)
Quarter: 2020Q3

REPORT INFORMATION
  Report Type: Spontaneous
  Country: FR (occurrence: FR)
  Receive Date: 20190311
  Receipt Date: 20200907
  Transmission Date: 20201102
  Serious: Yes (Hospitalization, Other)
  Sender: FDA-Public Use
  Company Number: FR-SUN PHARMACEUTICAL INDUSTRIES LTD-2019R1-201208

PATIENT
  Age: 4 Day
  Sex: Male
  Weight: 48 kg

DRUGS (15)
  1. ONDANSETRON [Interacting]
     Active Substance: ONDANSETRON
     Indication: PROPHYLAXIS OF NAUSEA AND VOMITING
     Dosage: UNK
     Route: 064
  2. BLEOMYCIN [Suspect]
     Active Substance: BLEOMYCIN SULFATE
     Dosage: 10 MILLIGRAM/SQ. METER, QD
     Route: 064
  3. VALACICLOVIR [Suspect]
     Active Substance: VALACYCLOVIR HYDROCHLORIDE
     Indication: PRODUCT USED FOR UNKNOWN INDICATION
     Dosage: 500 MILLIGRAM, QD
     Route: 064
  4. CAFFEINE. [Concomitant]
     Active Substance: CAFFEINE
     Indication: PRODUCT USED FOR UNKNOWN INDICATION
     Route: 064
  5. DOXORUBICIN [Interacting]
     Active Substance: DOXORUBICIN
     Indication: HODGKIN^S DISEASE STAGE II
     Dosage: 48 MILLIGRAM (AT DAY 1 AND 15 OF A 28?DAY CYCLE)
     Route: 064
     Dates: start: 20171108
  6. PREDNISONE. [Suspect]
     Active Substance: PREDNISONE
     Indication: PRODUCT USED FOR UNKNOWN INDICATION
     Dosage: 80 MILLIGRAM, DAILY
     Route: 064
     Dates: start: 2017
  7. BLEOMYCIN [Suspect]
     Active Substance: BLEOMYCIN SULFATE
     Indication: HODGKIN^S DISEASE STAGE II
     Dosage: 19.2 MILLIGRAM (AT DAY 1 AND 15 OF A 28?DAY CYCLE)
     Route: 064
     Dates: start: 20171108
  8. GLUCOSE [Suspect]
     Active Substance: DEXTROSE
     Indication: PRODUCT USED FOR UNKNOWN INDICATION
     Dosage: 20 ML (USED AS A VEHICLE FOR DOXORUBICIN DRUG ADMINISTRATION)
     Route: 064
  9. DEXAMETHASONE. [Concomitant]
     Active Substance: DEXAMETHASONE
     Indication: PROPHYLAXIS OF NAUSEA AND VOMITING
     Dosage: 10 MILLIGRAM
     Route: 064
  10. ENOXAPARIN [Concomitant]
     Active Substance: ENOXAPARIN
     Indication: PRODUCT USED FOR UNKNOWN INDICATION
     Dosage: 4000 IU, BID
     Route: 064
     Dates: start: 2017
  11. LANSOPRAZOLE. [Concomitant]
     Active Substance: LANSOPRAZOLE
     Indication: PRODUCT USED FOR UNKNOWN INDICATION
     Dosage: 30 MILLIGRAM, QD
     Route: 064
  12. VINBLASTINE [Suspect]
     Active Substance: VINBLASTINE
     Indication: HODGKIN^S DISEASE STAGE II
     Dosage: 10 MILLIGRAM (AT DAY 1 AND 15 OF A 28?DAY CYCLE)
     Route: 064
  13. DACARBAZINE. [Suspect]
     Active Substance: DACARBAZINE
     Indication: HODGKIN^S DISEASE STAGE II
     Dosage: 730 MILLIGRAM (AT DAY 1 AND 15 OF A 28?DAY CYCLE)
     Route: 064
     Dates: start: 20171108
  14. AMOXICILLIN. [Concomitant]
     Active Substance: AMOXICILLIN
     Indication: PRODUCT USED FOR UNKNOWN INDICATION
     Dosage: UNK
     Route: 064
  15. SODIUM CHLORIDE. [Suspect]
     Active Substance: SODIUM CHLORIDE
     Indication: HODGKIN^S DISEASE
     Dosage: 20 MILLIGRAM, DAILY
     Route: 064
     Dates: start: 20171108

REACTIONS (8)
  - Cardiac failure [Recovering/Resolving]
  - Troponin increased [Recovered/Resolved]
  - Cardiac dysfunction [Recovered/Resolved]
  - Foetal exposure during pregnancy [Recovered/Resolved]
  - Cardiotoxicity [Recovered/Resolved]
  - Drug interaction [Recovered/Resolved]
  - Premature baby [Recovered/Resolved]
  - Off label use [Unknown]

NARRATIVE: CASE EVENT DATE: 2017
